FAERS Safety Report 14554192 (Version 1)
Quarter: 2018Q1

REPORT INFORMATION
  Report Type: Spontaneous
  Country: US (occurrence: US)
  Receive Date: 20180208
  Receipt Date: 20180208
  Transmission Date: 20180509
  Serious: Yes (Hospitalization)
  Sender: FDA-Public Use
  Company Number: None

PATIENT
  Age: 66 Year
  Sex: Male
  Weight: 92.53 kg

DRUGS (1)
  1. SEVOFLURANE. [Suspect]
     Active Substance: SEVOFLURANE
     Indication: BIOPSY TONGUE
     Dosage: FREQUENCY - OTHER
     Route: 055
     Dates: start: 20130514, end: 20130514

REACTIONS (4)
  - Agitation [None]
  - Aggression [None]
  - Speech disorder [None]
  - Dyskinesia [None]

NARRATIVE: CASE EVENT DATE: 20130514
